FAERS Safety Report 18690925 (Version 1)
Quarter: 2021Q1

REPORT INFORMATION
  Report Type: Spontaneous
  Country: ES (occurrence: ES)
  Receive Date: 20210101
  Receipt Date: 20210101
  Transmission Date: 20210419
  Serious: Yes (Hospitalization)
  Sender: FDA-Public Use
  Company Number: ES-ACCORD-213007

PATIENT
  Age: 54 Year
  Sex: Male

DRUGS (1)
  1. CISPLATIN. [Suspect]
     Active Substance: CISPLATIN
     Indication: B-CELL LYMPHOMA
     Dosage: FIRST CYCLE ON 29/09, SECOND CYCLE ON 26/10 AND THIRD CYCLE ON 30/11.
     Route: 042
     Dates: start: 20200929, end: 20201130

REACTIONS (2)
  - Off label use [Unknown]
  - Renal tubular dysfunction [Recovering/Resolving]

NARRATIVE: CASE EVENT DATE: 20201216
